FAERS Safety Report 19653580 (Version 1)
Quarter: 2021Q3

REPORT INFORMATION
  Report Type: Spontaneous
  Country: DE (occurrence: DE)
  Receive Date: 20210803
  Receipt Date: 20210803
  Transmission Date: 20211014
  Serious: Yes (Other)
  Sender: FDA-Public Use
  Company Number: DE-BRISTOL-MYERS SQUIBB COMPANY-BMS-2021-073500

PATIENT
  Sex: Male

DRUGS (5)
  1. NIVOLUMAB [Suspect]
     Active Substance: NIVOLUMAB
     Indication: PLEURAL MESOTHELIOMA
     Dosage: 240 MG FLAT DOSE ONCE DAILY ON DAYS 1, 15 ,29 (EVERY 2 WEEKS)
     Route: 065
     Dates: start: 20201007, end: 20210210
  2. IPILIMUMAB [Suspect]
     Active Substance: IPILIMUMAB
     Indication: PLEURAL MESOTHELIOMA
     Dosage: 1 MILLIGRAM/KILOGRAM, EVERY 6 WEEKS
     Route: 065
     Dates: start: 20201007
  3. INFLUENZA VACCINE [Concomitant]
     Active Substance: INFLUENZA VIRUS VACCINE
     Indication: INFLUENZA IMMUNISATION
     Dosage: UNK
     Route: 065
     Dates: start: 202010
  4. NIVOLUMAB [Suspect]
     Active Substance: NIVOLUMAB
     Dosage: 240 MG FLAT DOSE. ONCE DAILY ON DAYS 1 AND 15). CYCLE 1
     Route: 065
     Dates: start: 20210324
  5. VARICELLA ZOSTER VACCINE [Concomitant]
     Active Substance: VARICELLA-ZOSTER VIRUS STRAIN OKA/MERCK LIVE ANTIGEN
     Indication: PRODUCT USED FOR UNKNOWN INDICATION
     Dosage: UNK
     Route: 065
     Dates: start: 202001

REACTIONS (3)
  - Atonic urinary bladder [Unknown]
  - Intentional product use issue [Unknown]
  - Pleural effusion [Unknown]

NARRATIVE: CASE EVENT DATE: 202103
